FAERS Safety Report 8307044-8 (Version None)
Quarter: 2012Q2

REPORT INFORMATION
  Report Type: 
  Country: None (occurrence: None)
  Receive Date: 20120424
  Receipt Date: 20120416
  Transmission Date: 20120825
  Serious: Yes (Hospitalization, Other)
  Sender: FDA-Public Use
  Company Number: CO-ASTELLAS-2012US003987

PATIENT
  Age: 15 Year
  Sex: Male

DRUGS (2)
  1. PROGRAF [Suspect]
     Indication: GLOMERULONEPHROPATHY
     Dosage: 2 MG, UNKNOWN/D
     Route: 048
     Dates: start: 20110101
  2. PREDNISOLONE [Concomitant]
     Indication: PRODUCT USED FOR UNKNOWN INDICATION
     Dosage: UNK
     Route: 065

REACTIONS (3)
  - HYPEROSMOLAR STATE [None]
  - HYPERGLYCAEMIA [None]
  - OFF LABEL USE [None]
